FAERS Safety Report 8921005 (Version 3)
Quarter: 2013Q1

REPORT INFORMATION
  Report Type: Spontaneous
  Country: US (occurrence: US)
  Receive Date: 20121122
  Receipt Date: 20130110
  Transmission Date: 20140127
  Serious: Yes (Other)
  Sender: FDA-Public Use
  Company Number: US-BRISTOL-MYERS SQUIBB COMPANY-17119876

PATIENT
  Age: 57 Year
  Sex: Male

DRUGS (2)
  1. REYATAZ [Suspect]
     Indication: HIV INFECTION
     Dates: start: 20120517
  2. TRUVADA [Suspect]
     Indication: HIV INFECTION
     Dosage: 1 DF:1 300/200MG TAB
     Dates: start: 20120517

REACTIONS (5)
  - Pain [Unknown]
  - Abasia [Unknown]
  - Asthenia [Unknown]
  - Back pain [Unknown]
  - Treatment noncompliance [Unknown]
